FAERS Safety Report 18587055 (Version 4)
Quarter: 2022Q3

REPORT INFORMATION
  Report Type: Spontaneous
  Country: DE (occurrence: DE)
  Receive Date: 20201207
  Receipt Date: 20220713
  Transmission Date: 20221027
  Serious: Yes (Hospitalization)
  Sender: FDA-Public Use
  Company Number: DE-GSKCCFEMEA-CASE-01098664_AE-37742

PATIENT

DRUGS (1)
  1. BLENREP [Suspect]
     Active Substance: BELANTAMAB MAFODOTIN-BLMF
     Indication: Plasma cell myeloma
     Dosage: 230 MG, QD
     Dates: start: 20201126, end: 20201126

REACTIONS (5)
  - Fall [Recovered/Resolved]
  - Cerebral disorder [Recovering/Resolving]
  - Aphasia [Recovering/Resolving]
  - Bradykinesia [Recovering/Resolving]
  - Sensory disturbance [Recovering/Resolving]

NARRATIVE: CASE EVENT DATE: 20201128
